FAERS Safety Report 5334181-2 (Version None)
Quarter: 2007Q2

REPORT INFORMATION
  Report Type: 
  Country: None (occurrence: None)
  Receive Date: 20070523
  Receipt Date: 20070523
  Transmission Date: 20071010
  Serious: Yes (Life-Threatening, Hospitalization)
  Sender: FDA-Public Use
  Company Number: None

PATIENT
  Age: 81 Year
  Sex: Male
  Weight: 87.5 kg

DRUGS (1)
  1. DONEPEZIL HCL [Suspect]
     Indication: AMNESIA
     Dosage: 1 TAB PO AT BEDTIME
     Route: 048
     Dates: start: 20070129, end: 20070516

REACTIONS (2)
  - GASTROINTESTINAL HAEMORRHAGE [None]
  - PEPTIC ULCER [None]
